FAERS Safety Report 6243844-6 (Version None)
Quarter: 2009Q2

REPORT INFORMATION
  Report Type: 
  Country: None (occurrence: None)
  Receive Date: 20090623
  Receipt Date: 20090611
  Transmission Date: 20091009
  Serious: Yes (Other)
  Sender: FDA-Public Use
  Company Number: RENA-1000457

PATIENT
  Age: 34 Year
  Sex: Female

DRUGS (23)
  1. RENAGEL [Suspect]
     Indication: HYPERPHOSPHATAEMIA
     Dosage: 800 MG, TID
     Dates: start: 20080828, end: 20081215
  2. AZATHIOPRINE SODIUM [Suspect]
     Indication: DRUG USE FOR UNKNOWN INDICATION
     Dosage: 75 MG, BID ; 50 MG, BID ; 25 MG
     Dates: start: 20080613, end: 20080821
  3. AZATHIOPRINE SODIUM [Suspect]
     Indication: DRUG USE FOR UNKNOWN INDICATION
     Dosage: 75 MG, BID ; 50 MG, BID ; 25 MG
     Dates: start: 20080822, end: 20080905
  4. AZATHIOPRINE SODIUM [Suspect]
     Indication: DRUG USE FOR UNKNOWN INDICATION
     Dosage: 75 MG, BID ; 50 MG, BID ; 25 MG
     Dates: start: 20080906, end: 20080916
  5. NEORAL [Suspect]
     Indication: DRUG USE FOR UNKNOWN INDICATION
     Dosage: 100 MG, BID ; 50 MG, BID ; 25 MG, BID
     Dates: end: 20081021
  6. NEORAL [Suspect]
     Indication: DRUG USE FOR UNKNOWN INDICATION
     Dosage: 100 MG, BID ; 50 MG, BID ; 25 MG, BID
     Dates: start: 20081022, end: 20081105
  7. NEORAL [Suspect]
     Indication: DRUG USE FOR UNKNOWN INDICATION
     Dosage: 100 MG, BID ; 50 MG, BID ; 25 MG, BID
     Dates: start: 20081105, end: 20081217
  8. KAYEXALATE [Suspect]
     Indication: DRUG USE FOR UNKNOWN INDICATION
     Dosage: 1, QD ; 2, QD
     Dates: start: 20080613, end: 20080804
  9. KAYEXALATE [Suspect]
     Indication: DRUG USE FOR UNKNOWN INDICATION
     Dosage: 1, QD ; 2, QD
     Dates: start: 20080805, end: 20081115
  10. MUCOMYST [Suspect]
     Indication: DRUG USE FOR UNKNOWN INDICATION
     Dosage: 200 MG, BID
     Dates: start: 20081107, end: 20081110
  11. TIXOCORTOL PIVALATE [Suspect]
     Indication: DRUG USE FOR UNKNOWN INDICATION
     Dosage: 2 , BID
     Dates: start: 20081031, end: 20081107
  12. RHINOFLUIMUCIL (ACETYLCYSTEINE, BENZALKONIUM CHLORIDE, TUAMINOHEPTANE) [Suspect]
     Indication: DRUG USE FOR UNKNOWN INDICATION
     Dosage: 2, BID
     Dates: start: 20081107, end: 20081110
  13. ATARAX [Suspect]
     Indication: DRUG USE FOR UNKNOWN INDICATION
     Dosage: 25 MG, QD
     Dates: start: 20080818, end: 20081217
  14. CEFPODOXIME PROXETIL [Suspect]
     Indication: DRUG USE FOR UNKNOWN INDICATION
     Dosage: 100 MG, BID
     Dates: start: 20081107, end: 20081117
  15. ANTIBIOTREX (ERYTHROMYCIN, ISOTRETINOIN) [Suspect]
     Indication: DRUG USE FOR UNKNOWN INDICATION
     Dosage: 1 DAY, BID
     Dates: start: 20080829, end: 20080916
  16. RUBOZINC (ZINC GLUCONATE) [Suspect]
     Indication: DRUG USE FOR UNKNOWN INDICATION
     Dates: start: 20080829, end: 20080916
  17. AMLODIPINE BESYLATE [Suspect]
     Indication: DRUG USE FOR UNKNOWN INDICATION
     Dosage: 5 MG, QD ; 5 MG, QD
     Dates: start: 20080620, end: 20080916
  18. AMLODIPINE BESYLATE [Suspect]
     Indication: DRUG USE FOR UNKNOWN INDICATION
     Dosage: 5 MG, QD ; 5 MG, QD
     Dates: start: 20080917, end: 20081215
  19. LASIX [Suspect]
     Indication: DRUG USE FOR UNKNOWN INDICATION
     Dosage: 500 MG, BID
     Dates: start: 20080613, end: 20081215
  20. FOLIC ACID [Suspect]
     Indication: DRUG USE FOR UNKNOWN INDICATION
     Dosage: 5 MG, BID
     Dates: start: 20081008, end: 20081217
  21. UN-ALFA (ALFACALCIDOL) [Suspect]
     Indication: DRUG USE FOR UNKNOWN INDICATION
     Dosage: 5 MCG, QD
     Dates: start: 20080704, end: 20081017
  22. NEXIUM [Suspect]
     Indication: DRUG USE FOR UNKNOWN INDICATION
     Dosage: 40 MG, QD ; 20 MG
     Dates: start: 20080613, end: 20080821
  23. NEXIUM [Suspect]
     Indication: DRUG USE FOR UNKNOWN INDICATION
     Dosage: 40 MG, QD ; 20 MG
     Dates: start: 20080822, end: 20081217

REACTIONS (4)
  - ABORTION SPONTANEOUS [None]
  - DRUG EXPOSURE DURING PREGNANCY [None]
  - INTRA-UTERINE DEATH [None]
  - TREATMENT NONCOMPLIANCE [None]
